FAERS Safety Report 4968524-6 (Version None)
Quarter: 2006Q2

REPORT INFORMATION
  Report Type: 
  Country: None (occurrence: None)
  Receive Date: 20060410
  Receipt Date: 20060330
  Transmission Date: 20061013
  Serious: Yes (Hospitalization)
  Sender: FDA-Public Use
  Company Number: FR-AVENTIS-200611159FR

PATIENT
  Age: 18 Year
  Sex: Female

DRUGS (15)
  1. LOVENOX [Suspect]
     Route: 058
     Dates: start: 20060109, end: 20060110
  2. AUGMENTIN [Suspect]
     Route: 042
     Dates: start: 20060109, end: 20060125
  3. PERFALGAN [Concomitant]
     Route: 042
     Dates: start: 20060109, end: 20060120
  4. SPASFON [Concomitant]
     Route: 042
     Dates: start: 20060109, end: 20060119
  5. PROFENID ^PHARMA RHODIA^ [Concomitant]
     Route: 042
     Dates: start: 20060109, end: 20060111
  6. MOPRAL [Concomitant]
     Route: 042
     Dates: start: 20060109, end: 20060118
  7. SUFENTA [Concomitant]
     Indication: ANAESTHESIA
     Dates: start: 20060109, end: 20060109
  8. MIDAZOLAM [Concomitant]
     Indication: ANAESTHESIA
     Dates: start: 20060109, end: 20060109
  9. NIMBEX [Concomitant]
     Indication: ANAESTHESIA
     Dates: start: 20060109, end: 20060109
  10. PROPOFOL [Concomitant]
     Indication: ANAESTHESIA
     Dates: start: 20060109, end: 20060109
  11. PRIMPERAN TAB [Concomitant]
  12. ZOPHREN [Concomitant]
  13. TOPALGIC [Concomitant]
     Dates: start: 20060109, end: 20060116
  14. MORPHINE [Concomitant]
     Dates: start: 20060110, end: 20060116
  15. TRANXENE [Concomitant]
     Dates: start: 20060110, end: 20060119

REACTIONS (3)
  - ANAEMIA [None]
  - DRUG INTERACTION [None]
  - INTRA-ABDOMINAL HAEMORRHAGE [None]
